FAERS Safety Report 6601894-1 (Version None)
Quarter: 2010Q1

REPORT INFORMATION
  Report Type: 
  Country: None (occurrence: None)
  Receive Date: 20100225
  Receipt Date: 20100215
  Transmission Date: 20100710
  Serious: Yes (Death)
  Sender: FDA-Public Use
  Company Number: US-JNJFOC-20100208356

PATIENT
  Sex: Female
  Weight: 70.76 kg

DRUGS (7)
  1. FENTANYL [Suspect]
     Indication: DRUG USE FOR UNKNOWN INDICATION
  2. PREMARIN [Concomitant]
  3. DILANTIN [Concomitant]
  4. KLONOPIN [Concomitant]
  5. VICODIN [Concomitant]
  6. PAXIL [Concomitant]
  7. SEROQUEL [Concomitant]

REACTIONS (2)
  - NARCOTIC INTOXICATION [None]
  - WRONG TECHNIQUE IN DRUG USAGE PROCESS [None]
